FAERS Safety Report 4522274-9 (Version None)
Quarter: 2004Q4

REPORT INFORMATION
  Report Type: 
  Country: None (occurrence: None)
  Receive Date: 20041207
  Receipt Date: 20041124
  Transmission Date: 20050328
  Serious: Yes (Hospitalization)
  Sender: FDA-Public Use
  Company Number: 210818

PATIENT
  Sex: Male

DRUGS (5)
  1. EFALIZUMAB (EFALIZUMAB) PWDR + SOLVENT, INJECTION SOLN, 125MG [Suspect]
     Indication: PSORIASIS
     Dosage: 1 MG/KG, 1/WEEK, SUBCUTANEOUS
     Route: 058
     Dates: start: 20040818, end: 20041020
  2. NSAID (NON-STEROIDAL ANTI-INFLAMMATORY DRUG NOS) [Concomitant]
  3. PREDNISONE [Concomitant]
  4. CYCLOSPORINE [Concomitant]
  5. ETANERCEPT (ETANERCEPT) [Concomitant]

REACTIONS (7)
  - ANAEMIA [None]
  - DECREASED ACTIVITY [None]
  - DERMATITIS EXFOLIATIVE [None]
  - LYMPHOCYTE COUNT DECREASED [None]
  - PSORIATIC ARTHROPATHY [None]
  - PYREXIA [None]
  - THERAPY NON-RESPONDER [None]
